FAERS Safety Report 16344096 (Version 1)
Quarter: 2019Q2

REPORT INFORMATION
  Report Type: Spontaneous
  Country: JP (occurrence: JP)
  Receive Date: 20190522
  Receipt Date: 20190522
  Transmission Date: 20190711
  Serious: Yes (Other)
  Sender: FDA-Public Use
  Company Number: JP-APOPHARMA USA, INC.-2019AP014303

PATIENT
  Age: 34 Year
  Sex: Male

DRUGS (1)
  1. ALKERAN [Suspect]
     Active Substance: MELPHALAN
     Indication: CORD BLOOD TRANSPLANT THERAPY
     Dosage: UNK, UNKNOWN
     Route: 065

REACTIONS (3)
  - Pancytopenia [Unknown]
  - Hyperferritinaemia [Unknown]
  - Respiratory failure [Unknown]
